FAERS Safety Report 14253469 (Version 3)
Quarter: 2018Q1

REPORT INFORMATION
  Report Type: Report from Study
  Country: US (occurrence: US)
  Receive Date: 20171205
  Receipt Date: 20180329
  Transmission Date: 20180508
  Serious: Yes (Death)
  Sender: FDA-Public Use
  Company Number: US-PFIZER INC-2017514611

PATIENT
  Age: 78 Year
  Sex: Female
  Weight: 66.3 kg

DRUGS (1)
  1. AXITINIB [Suspect]
     Active Substance: AXITINIB
     Indication: RENAL CELL CARCINOMA
     Dosage: 5 MG, 2X/DAY
     Dates: start: 20170905, end: 20171030

REACTIONS (2)
  - Neoplasm progression [Fatal]
  - Septic shock [Fatal]

NARRATIVE: CASE EVENT DATE: 20171114
